FAERS Safety Report 6521193-6 (Version None)
Quarter: 2009Q4

REPORT INFORMATION
  Report Type: 
  Country: None (occurrence: None)
  Receive Date: 20091222
  Receipt Date: 20091210
  Transmission Date: 20100525
  Serious: Yes (Other)
  Sender: FDA-Public Use
  Company Number: 234015J09USA

PATIENT
  Age: 48 Year
  Sex: Male

DRUGS (1)
  1. REBIF [Suspect]
     Indication: MULTIPLE SCLEROSIS
     Dosage: 44 MCG, 1 IN 3 WEEKS, SUBCUTANEOUS
     Route: 058
     Dates: start: 20081218

REACTIONS (2)
  - CONDITION AGGRAVATED [None]
  - INTERVERTEBRAL DISC PROTRUSION [None]
